FAERS Safety Report 25134552 (Version 1)
Quarter: 2025Q1

REPORT INFORMATION
  Report Type: Spontaneous
  Country: DE (occurrence: DE)
  Receive Date: 20250328
  Receipt Date: 20250328
  Transmission Date: 20250408
  Serious: Yes (Disabling, Other)
  Sender: ROVIPHARM SAS
  Company Number: DE-ROVI-20250309

PATIENT
  Sex: Female

DRUGS (1)
  1. RISPERIDONE [Suspect]
     Active Substance: RISPERIDONE
     Indication: Schizophrenia

REACTIONS (2)
  - Psychotic behaviour [Unknown]
  - Suicide attempt [Unknown]
